FAERS Safety Report 6101662-3 (Version None)
Quarter: 2009Q1

REPORT INFORMATION
  Report Type: 
  Country: None (occurrence: None)
  Receive Date: 20090303
  Receipt Date: 20090303
  Transmission Date: 20090719
  Serious: Yes (Other)
  Sender: FDA-Public Use
  Company Number: None

PATIENT
  Age: 46 Year
  Sex: Female
  Weight: 95.2554 kg

DRUGS (2)
  1. LUPRON DEPOT [Suspect]
     Dates: start: 20070316, end: 20070816
  2. NORETHINDRONE [Suspect]
     Dates: start: 20070829

REACTIONS (11)
  - ACNE [None]
  - ANXIETY [None]
  - ARTHRALGIA [None]
  - FLUID RETENTION [None]
  - HOT FLUSH [None]
  - HYPERTRICHOSIS [None]
  - INJURY [None]
  - MOOD SWINGS [None]
  - TENDON RUPTURE [None]
  - WEIGHT INCREASED [None]
  - WEIGHT LOSS POOR [None]
